FAERS Safety Report 5157477-6 (Version None)
Quarter: 2006Q4

REPORT INFORMATION
  Report Type: 
  Country: None (occurrence: None)
  Receive Date: 20061127
  Receipt Date: 20061121
  Transmission Date: 20070319
  Serious: Yes (Death, Hospitalization)
  Sender: FDA-Public Use
  Company Number: US-GLAXOSMITHKLINE-A0628307A

PATIENT
  Age: 56 Year
  Sex: Female

DRUGS (2)
  1. VALTREX [Suspect]
     Route: 048
     Dates: start: 20050101
  2. GEMZAR [Concomitant]
     Dates: end: 20050201

REACTIONS (2)
  - STENT PLACEMENT [None]
  - THROMBOCYTOPENIC PURPURA [None]
